FAERS Safety Report 5904743-X (Version None)
Quarter: 2008Q3

REPORT INFORMATION
  Report Type: 
  Country: None (occurrence: None)
  Receive Date: 20080909
  Receipt Date: 20080314
  Transmission Date: 20090109
  Serious: Yes (Hospitalization)
  Sender: FDA-Public Use
  Company Number: 163-20785-08031055

PATIENT
  Age: 71 Year
  Sex: Female

DRUGS (3)
  1. THALIDOMIDE [Suspect]
     Indication: MULTIPLE MYELOMA
     Dosage: 100 MG, 2 IN1 D, ORAL : 50 MG, 1 IN 1 D, ORAL : 50-20MG, QD, ORAL
     Route: 048
     Dates: start: 20040702, end: 20060401
  2. THALIDOMIDE [Suspect]
     Indication: MULTIPLE MYELOMA
     Dosage: 100 MG, 2 IN1 D, ORAL : 50 MG, 1 IN 1 D, ORAL : 50-20MG, QD, ORAL
     Route: 048
     Dates: start: 20070326, end: 20080301
  3. THALIDOMIDE [Suspect]
     Indication: MULTIPLE MYELOMA
     Dosage: 100 MG, 2 IN1 D, ORAL : 50 MG, 1 IN 1 D, ORAL : 50-20MG, QD, ORAL
     Route: 048
     Dates: start: 20080314

REACTIONS (2)
  - DYSPNOEA [None]
  - PNEUMONIA [None]
